FAERS Safety Report 8298543-6 (Version None)
Quarter: 2012Q2

REPORT INFORMATION
  Report Type: 
  Country: None (occurrence: None)
  Receive Date: 20120419
  Receipt Date: 20110621
  Transmission Date: 20120825
  Serious: No
  Sender: FDA-Public Use
  Company Number: US-ABBOTT-11P-163-0734579-00

PATIENT
  Sex: Female
  Weight: 19 kg

DRUGS (1)
  1. LUPRON DEPOT-PED [Suspect]
     Indication: PRECOCIOUS PUBERTY
     Dates: start: 20090101

REACTIONS (3)
  - BREAST ENLARGEMENT [None]
  - BLOOD LUTEINISING HORMONE INCREASED [None]
  - VAGINAL DISCHARGE [None]
